FAERS Safety Report 11894168 (Version 4)
Quarter: 2016Q1

REPORT INFORMATION
  Report Type: Report from Study
  Country: US (occurrence: US)
  Receive Date: 20160107
  Receipt Date: 20160216
  Transmission Date: 20160526
  Serious: Yes (Other)
  Sender: FDA-Public Use
  Company Number: PHEH2016US000531

PATIENT
  Age: 20 Year
  Sex: Male

DRUGS (3)
  1. TRILEPTAL [Concomitant]
     Active Substance: OXCARBAZEPINE
     Indication: PRODUCT USED FOR UNKNOWN INDICATION
     Route: 065
  2. AFINITOR [Suspect]
     Active Substance: EVEROLIMUS
     Indication: ANGIOMYOLIPOMA
     Dosage: 5.0 MG, DAILY
     Route: 048
     Dates: start: 20151222, end: 20151225
  3. AFINITOR [Suspect]
     Active Substance: EVEROLIMUS
     Dosage: 5.0 MG, DAILY
     Route: 048
     Dates: start: 20151227, end: 20160112

REACTIONS (7)
  - Pneumonia [Recovering/Resolving]
  - Anxiety [Unknown]
  - Malaise [Unknown]
  - Pyrexia [Recovering/Resolving]
  - Sleep terror [Unknown]
  - Insomnia [Unknown]
  - Wheezing [Unknown]

NARRATIVE: CASE EVENT DATE: 20151224
